FAERS Safety Report 7265111-4 (Version None)
Quarter: 2011Q1

REPORT INFORMATION
  Report Type: 
  Country: None (occurrence: None)
  Receive Date: 20110131
  Receipt Date: 20110120
  Transmission Date: 20110831
  Serious: Yes (Hospitalization, Disabling, Other)
  Sender: FDA-Public Use
  Company Number: FR-NOVOPROD-322041

PATIENT
  Age: 69 Year
  Sex: Male
  Weight: 64 kg

DRUGS (9)
  1. VICTOZA [Suspect]
     Indication: TYPE 2 DIABETES MELLITUS
     Dosage: 1.2 MG, QD
     Route: 058
     Dates: start: 20100413, end: 20100831
  2. COTAREG [Concomitant]
     Dosage: UNK
     Dates: start: 20060101
  3. ACTOPLUS MET [Concomitant]
     Dosage: UNK
     Dates: start: 20080601, end: 20100831
  4. SOTALOL HCL [Concomitant]
     Dosage: UNK
     Dates: start: 20060101
  5. COLCHICINE [Concomitant]
  6. PLAVIX [Concomitant]
     Dosage: UNK
     Dates: start: 20060101
  7. ALLOPURINOL [Concomitant]
     Dosage: UNK
     Dates: start: 20000101
  8. COVERSYL                           /00790702/ [Concomitant]
     Dosage: UNK
     Dates: start: 20060101
  9. TAHOR [Concomitant]
     Dosage: UNK
     Dates: start: 20000101, end: 20101116

REACTIONS (1)
  - ADENOCARCINOMA PANCREAS [None]
